FAERS Safety Report 7749019-3 (Version None)
Quarter: 2011Q3

REPORT INFORMATION
  Report Type: 
  Country: None (occurrence: None)
  Receive Date: 20110909
  Receipt Date: 20110824
  Transmission Date: 20111222
  Serious: Yes (Disabling)
  Sender: FDA-Public Use
  Company Number: 2011080200

PATIENT
  Age: 74 Year
  Sex: Male

DRUGS (3)
  1. PENICILLAMINE [Suspect]
     Indication: SYSTEMIC SCLEROSIS
  2. IMMUNE GLOBULIN NOS [Suspect]
     Indication: SYSTEMIC SCLEROSIS
     Dosage: IV
     Route: 042
  3. PREDNISONE [Suspect]
     Indication: SYSTEMIC SCLEROSIS
     Dosage: HIGH DOSE

REACTIONS (2)
  - CALCINOSIS [None]
  - DISEASE PROGRESSION [None]
